FAERS Safety Report 4837322-6 (Version None)
Quarter: 2005Q4

REPORT INFORMATION
  Report Type: 
  Country: None (occurrence: None)
  Receive Date: 20051122
  Receipt Date: 20051114
  Transmission Date: 20060501
  Serious: Yes (Hospitalization)
  Sender: FDA-Public Use
  Company Number: J081-002-001677

PATIENT
  Age: 76 Year
  Sex: Male
  Weight: 67 kg

DRUGS (8)
  1. ARICEPT [Suspect]
     Indication: DEMENTIA ALZHEIMER'S TYPE
     Dosage: 3 MG, 1 IN 1 D; ORAL, 5 MG, 1 IN 1 D; ORAL
     Route: 048
     Dates: start: 20040202, end: 20040215
  2. ARICEPT [Suspect]
     Indication: DEMENTIA ALZHEIMER'S TYPE
     Dosage: 3 MG, 1 IN 1 D; ORAL, 5 MG, 1 IN 1 D; ORAL
     Route: 048
     Dates: start: 20040216, end: 20040531
  3. KETAS (IBUDILAST) [Concomitant]
  4. NATEGLINIDE [Concomitant]
  5. UNIPHYL [Concomitant]
  6. MUCODYNE (CARBOCISTEINE) [Concomitant]
  7. MUSCOSAL L (AMBROXOL) [Concomitant]
  8. FLUTIDE (FLUTICASONE) [Concomitant]

REACTIONS (8)
  - BLOOD PRESSURE SYSTOLIC INCREASED [None]
  - DIZZINESS [None]
  - DYSSTASIA [None]
  - FALL [None]
  - PAIN IN EXTREMITY [None]
  - PYREXIA [None]
  - RHABDOMYOLYSIS [None]
  - URINARY TRACT INFECTION [None]
